FAERS Safety Report 7327296-0 (Version None)
Quarter: 2011Q1

REPORT INFORMATION
  Report Type: 
  Country: None (occurrence: None)
  Receive Date: 20110302
  Receipt Date: 20110223
  Transmission Date: 20110831
  Serious: Yes (Other)
  Sender: FDA-Public Use
  Company Number: US-US-EMD SERONO, INC.-7044178

PATIENT
  Sex: Female

DRUGS (5)
  1. REBIF [Suspect]
     Route: 058
     Dates: start: 20100623
  2. KEPPRA [Concomitant]
     Indication: CONVULSION
  3. CARBITROL [Concomitant]
     Indication: CONVULSION
  4. REBIF [Suspect]
     Indication: MULTIPLE SCLEROSIS
     Route: 065
     Dates: end: 20100101
  5. REBIF [Suspect]
     Route: 065
     Dates: start: 20100401, end: 20100101

REACTIONS (5)
  - VICTIM OF SPOUSAL ABUSE [None]
  - RECTAL HAEMORRHAGE [None]
  - UNEVALUABLE EVENT [None]
  - SUICIDAL IDEATION [None]
  - ACTIVITIES OF DAILY LIVING IMPAIRED [None]
